FAERS Safety Report 8166417 (Version 4)
Quarter: 2012Q4

REPORT INFORMATION
  Report Type: 
  Country: JP (occurrence: JP)
  Receive Date: 20111003
  Receipt Date: 20121004
  Transmission Date: 20130627
  Serious: Yes (Hospitalization)
  Sender: FDA-Public Use
  Company Number: JP-AMGEN-JPNCT2011050795

PATIENT
  Age: 72 Year
  Sex: Female
  Weight: 49 kg

DRUGS (7)
  1. BLINDED DENOSUMAB [Suspect]
     Indication: RHEUMATOID ARTHRITIS
     Dosage: UNK
     Route: 058
     Dates: start: 20110222
  2. BLINDED PLACEBO [Suspect]
     Indication: RHEUMATOID ARTHRITIS
     Dosage: UNK
     Route: 058
     Dates: start: 20110222
  3. OLMETEC [Concomitant]
     Indication: HYPERTENSION
     Dosage: 10 mg, UNK
     Route: 048
     Dates: start: 20110526
  4. METOLATE [Concomitant]
     Indication: RHEUMATOID ARTHRITIS
     Dosage: 6 mg, qwk
     Route: 048
     Dates: start: 20110621
  5. AMLODIPINE [Concomitant]
     Indication: HYPERTENSION
     Dosage: 5 mg, qd
     Route: 048
     Dates: start: 20110526
  6. FOLIAMIN [Concomitant]
     Indication: PROPHYLAXIS
     Dosage: 5 mg, qwk
     Route: 048
     Dates: start: 20101017
  7. CALCI CHEW D3 [Concomitant]
     Indication: PRODUCT USED FOR UNKNOWN INDICATION
     Route: 048
     Dates: start: 20110201

REACTIONS (1)
  - Large intestine polyp [Recovered/Resolved]
